FAERS Safety Report 14681145 (Version 2)
Quarter: 2018Q2

REPORT INFORMATION
  Report Type: Spontaneous
  Country: IE (occurrence: IE)
  Receive Date: 20180326
  Receipt Date: 20180610
  Transmission Date: 20180711
  Serious: Yes (Life-Threatening, Hospitalization, Other)
  Sender: FDA-Public Use
  Company Number: IE-TEVA-2018-IE-871657

PATIENT
  Age: 49 Year
  Sex: Male

DRUGS (19)
  1. IFOSFAMIDE  (G) [Suspect]
     Active Substance: IFOSFAMIDE
     Indication: NON-HODGKIN^S LYMPHOMA
     Dosage: D2
     Route: 042
  2. LYRICA [Concomitant]
     Active Substance: PREGABALIN
     Indication: BACK PAIN
     Route: 048
  3. NEPRAMEL [Concomitant]
     Indication: PROPHYLAXIS AGAINST GASTROINTESTINAL ULCER
     Route: 048
  4. CYCLIZINE (GENERIC) [Concomitant]
     Indication: PROPHYLAXIS
     Dosage: TDS
     Route: 065
  5. IFOSFAMIDE  (G) [Suspect]
     Active Substance: IFOSFAMIDE
     Route: 065
  6. LASIX [Concomitant]
     Active Substance: FUROSEMIDE
     Indication: FLUID RETENTION
     Dosage: 20-40MG
     Route: 065
  7. ALLOPURINOL (GENERIC) [Concomitant]
     Indication: PROPHYLAXIS
     Route: 048
  8. ETOPOSIDE (G) [Suspect]
     Active Substance: ETOPOSIDE
     Indication: NON-HODGKIN^S LYMPHOMA
     Route: 042
  9. CARBOPLATIN. [Suspect]
     Active Substance: CARBOPLATIN
     Indication: NON-HODGKIN^S LYMPHOMA
     Dosage: 710 MILLIGRAM DAILY; D2
     Route: 042
  10. CARBOPLATIN. [Suspect]
     Active Substance: CARBOPLATIN
     Route: 042
  11. MESNA (GENERIC) [Suspect]
     Active Substance: MESNA
     Indication: NON-HODGKIN^S LYMPHOMA
     Dosage: D3: 3HRS,6HRS,9HRS POST IFOSFAMIDE
     Route: 042
  12. MACUSHIELD (G) [Concomitant]
     Active Substance: DIETARY SUPPLEMENT
     Indication: MACULAR DEGENERATION
     Route: 065
  13. METOCLOPRAMIDE (GENERIC) [Concomitant]
     Route: 065
  14. IFOSFAMIDE  (G) [Suspect]
     Active Substance: IFOSFAMIDE
     Route: 065
  15. ADCETRIS [Suspect]
     Active Substance: BRENTUXIMAB VEDOTIN
     Indication: LYMPHOMA
  16. ETOPOSIDE (G) [Suspect]
     Active Substance: ETOPOSIDE
     Dosage: D1 TO D3
     Route: 042
     Dates: start: 20171103, end: 20171105
  17. VALTREX [Concomitant]
     Active Substance: VALACYCLOVIR HYDROCHLORIDE
     Indication: PROPHYLAXIS
     Route: 048
  18. MESNA (GENERIC) [Suspect]
     Active Substance: MESNA
     Dosage: D2 + D32200MG - 3HRS, 6HRS, 9HRS POST OFOSFAMINDE
     Route: 042
  19. ADCETRIS [Suspect]
     Active Substance: BRENTUXIMAB VEDOTIN
     Indication: NON-HODGKIN^S LYMPHOMA
     Dosage: D1 ONLY; SECOND REPORTER NOTES: THEY ARE UNSURE OF DURATION(PATIENT HAD TREATMENT IN OTHER HOSPITAL)
     Dates: start: 20171103, end: 20171103

REACTIONS (3)
  - Dialysis [Recovering/Resolving]
  - Acute hepatic failure [Recovering/Resolving]
  - Renal failure [Recovering/Resolving]

NARRATIVE: CASE EVENT DATE: 20171111
